FAERS Safety Report 11879881 (Version 2)
Quarter: 2016Q1

REPORT INFORMATION
  Report Type: Spontaneous
  Country: US (occurrence: US)
  Receive Date: 20151230
  Receipt Date: 20160127
  Transmission Date: 20160526
  Serious: Yes (Hospitalization, Other)
  Sender: FDA-Public Use
  Company Number: US-BEH-2015057198

PATIENT
  Age: 55 Year
  Sex: Female
  Weight: 83 kg

DRUGS (18)
  1. EPIPEN [Concomitant]
     Active Substance: EPINEPHRINE
  2. MORPHINE SULFATE. [Concomitant]
     Active Substance: MORPHINE SULFATE
  3. LIPITOR [Concomitant]
     Active Substance: ATORVASTATIN CALCIUM
  4. ARMOUR THYROID [Concomitant]
     Active Substance: THYROID, PORCINE
  5. DIAZEPAM. [Concomitant]
     Active Substance: DIAZEPAM
  6. TESTOSTERONE. [Concomitant]
     Active Substance: TESTOSTERONE
  7. HIZENTRA [Suspect]
     Active Substance: HUMAN IMMUNOGLOBULIN G
     Dosage: 2 GM 10 ML VIAL
     Route: 058
     Dates: start: 20151116
  8. ACETAMINOPHEN. [Concomitant]
     Active Substance: ACETAMINOPHEN
  9. OMEPRAZOLE. [Concomitant]
     Active Substance: OMEPRAZOLE
  10. WELLBUTRIN [Concomitant]
     Active Substance: BUPROPION HYDROCHLORIDE
  11. ATENOLOL- CHLORTHALIDONE [Concomitant]
  12. HIZENTRA [Suspect]
     Active Substance: HUMAN IMMUNOGLOBULIN G
     Indication: MIGRAINE
  13. PROAIR HFA [Concomitant]
     Active Substance: ALBUTEROL SULFATE
  14. PROVIGIL [Concomitant]
     Active Substance: MODAFINIL
  15. LIDOCAINE/PRILOCAINE [Concomitant]
  16. DIPHENHYDRAMINE. [Concomitant]
     Active Substance: DIPHENHYDRAMINE
  17. PERCOCET [Concomitant]
     Active Substance: ACETAMINOPHEN\OXYCODONE HYDROCHLORIDE
  18. PROMETRIUM [Concomitant]
     Active Substance: PROGESTERONE

REACTIONS (4)
  - Intervertebral disc protrusion [Unknown]
  - Neuralgia [Unknown]
  - Spinal fusion surgery [Unknown]
  - Sinusitis [Unknown]

NARRATIVE: CASE EVENT DATE: 201511
